FAERS Safety Report 20175375 (Version 1)
Quarter: 2021Q4

REPORT INFORMATION
  Report Type: Spontaneous
  Country: CN (occurrence: CN)
  Receive Date: 20211213
  Receipt Date: 20211213
  Transmission Date: 20220303
  Serious: Yes (Hospitalization)
  Sender: FDA-Public Use
  Company Number: CN-BAXTER-2021BAX039252

PATIENT
  Age: 58 Year
  Sex: Male
  Weight: 74 kg

DRUGS (11)
  1. CYCLOPHOSPHAMIDE [Suspect]
     Active Substance: CYCLOPHOSPHAMIDE
     Indication: Follicular lymphoma
     Dosage: CYCLOPHOSPHAMIDE 1.2G + 0.9% NS 100ML
     Route: 041
     Dates: start: 20211120, end: 20211120
  2. CYCLOPHOSPHAMIDE [Suspect]
     Active Substance: CYCLOPHOSPHAMIDE
     Dosage: DOSE REINTRODUCED
     Route: 041
  3. SODIUM CHLORIDE [Suspect]
     Active Substance: SODIUM CHLORIDE
     Indication: Medication dilution
     Dosage: RITUXIMAB 100MG + 0.9% NS 100ML
     Route: 041
     Dates: start: 20211119
  4. VINCRISTINE [Suspect]
     Active Substance: VINCRISTINE
     Indication: Follicular lymphoma
     Dosage: VINCRISTINE 2MG + 0.9% NS 20ML
     Route: 042
     Dates: start: 20211120, end: 20211120
  5. VINCRISTINE [Suspect]
     Active Substance: VINCRISTINE
     Dosage: DOSE REINTRODUCED
     Route: 042
  6. SODIUM CHLORIDE [Suspect]
     Active Substance: SODIUM CHLORIDE
     Indication: Medication dilution
     Dosage: VINCRISTINE 2MG + 0.9% NS 20ML
     Route: 042
     Dates: start: 20211120, end: 20211120
  7. SODIUM CHLORIDE [Suspect]
     Active Substance: SODIUM CHLORIDE
     Dosage: DOSE REINTRODUCED
     Route: 042
  8. SODIUM CHLORIDE [Suspect]
     Active Substance: SODIUM CHLORIDE
     Indication: Medication dilution
     Dosage: CYCLOPHOSPHAMIDE 1.2G + 0.9% NS 100ML
     Route: 041
     Dates: start: 20211120, end: 20211120
  9. SODIUM CHLORIDE [Suspect]
     Active Substance: SODIUM CHLORIDE
     Dosage: DOSE REINTRODUCED
     Route: 041
  10. RITUXIMAB [Suspect]
     Active Substance: RITUXIMAB
     Indication: Follicular lymphoma
     Dosage: RITUXIMAB 100MG + 0.9% NS 100ML
     Route: 041
     Dates: start: 20211119, end: 20211119
  11. RITUXIMAB [Suspect]
     Active Substance: RITUXIMAB
     Dosage: DOSE REINTRODUCED
     Route: 041

REACTIONS (1)
  - Myelosuppression [Recovered/Resolved]

NARRATIVE: CASE EVENT DATE: 20211126
